FAERS Safety Report 4316915-9 (Version None)
Quarter: 2004Q1

REPORT INFORMATION
  Report Type: 
  Country: None (occurrence: None)
  Receive Date: 20040308
  Receipt Date: 20030223
  Transmission Date: 20041129
  Serious: Yes (Other)
  Sender: FDA-Public Use
  Company Number: 780

PATIENT
  Age: 16 Year
  Sex: Male
  Weight: 81.6475 kg

DRUGS (1)
  1. AMNESTEEM [Suspect]
     Indication: ACNE
     Dosage: BID PO
     Route: 047
     Dates: start: 20030501, end: 20031101

REACTIONS (1)
  - GROWTH RETARDATION [None]
